FAERS Safety Report 5273992-9 (Version None)
Quarter: 2007Q1

REPORT INFORMATION
  Report Type: 
  Country: None (occurrence: None)
  Receive Date: 20070323
  Receipt Date: 20070319
  Transmission Date: 20070707
  Serious: Yes (Other)
  Sender: FDA-Public Use
  Company Number: JP-JPN-A200700684

PATIENT
  Age: 37 Year
  Sex: Male

DRUGS (8)
  1. PAXIL [Suspect]
     Indication: DEPRESSION
     Route: 048
     Dates: start: 20060918
  2. PRIMIDONE [Concomitant]
     Route: 048
  3. TEGRETOL [Concomitant]
     Route: 048
  4. PRIMIDONE [Concomitant]
     Route: 048
  5. CONSTAN [Concomitant]
     Indication: DEPRESSION
     Dosage: 1.2MG PER DAY
     Route: 048
     Dates: start: 20060922
  6. ROHYPNOL [Concomitant]
     Indication: DEPRESSION
     Dosage: 2MG PER DAY
     Route: 048
     Dates: start: 20060922
  7. CLONAZEPAM [Concomitant]
     Indication: EPILEPSY
     Dosage: 2MG PER DAY
     Route: 048
     Dates: start: 20030508
  8. MUCOSTA [Concomitant]
     Indication: GASTRITIS
     Dosage: 200MG PER DAY
     Route: 048
     Dates: start: 20030109

REACTIONS (1)
  - EPILEPSY [None]
